FAERS Safety Report 18616969 (Version 8)
Quarter: 2025Q2

REPORT INFORMATION
  Report Type: Report from Study
  Country: US (occurrence: US)
  Receive Date: 20201215
  Receipt Date: 20250402
  Transmission Date: 20250716
  Serious: Yes (Hospitalization)
  Sender: TAKEDA
  Company Number: US-TAKEDA-US201933808

PATIENT
  Age: 57 Year
  Sex: Female

DRUGS (10)
  1. ECALLANTIDE [Suspect]
     Active Substance: ECALLANTIDE
     Indication: Hereditary angioedema
  2. ECALLANTIDE [Suspect]
     Active Substance: ECALLANTIDE
  3. ECALLANTIDE [Suspect]
     Active Substance: ECALLANTIDE
  4. ECALLANTIDE [Suspect]
     Active Substance: ECALLANTIDE
  5. FIRAZYR [Suspect]
     Active Substance: ICATIBANT ACETATE
     Indication: Hereditary angioedema
  6. FIRAZYR [Suspect]
     Active Substance: ICATIBANT ACETATE
  7. FIRAZYR [Suspect]
     Active Substance: ICATIBANT ACETATE
  8. TAKHZYRO [Suspect]
     Active Substance: LANADELUMAB-FLYO
     Indication: Hereditary angioedema
     Dosage: 300 MILLIGRAM, Q2WEEKS
     Dates: start: 20221027
  9. TAKHZYRO [Suspect]
     Active Substance: LANADELUMAB-FLYO
     Dosage: UNK UNK, Q2WEEKS
  10. TAKHZYRO [Suspect]
     Active Substance: LANADELUMAB-FLYO

REACTIONS (2)
  - Influenza [Unknown]
  - Hereditary angioedema [Not Recovered/Not Resolved]

NARRATIVE: CASE EVENT DATE: 20190916
